FAERS Safety Report 9282617 (Version 2)
Quarter: 2013Q2

REPORT INFORMATION
  Report Type: Spontaneous
  Country: US (occurrence: US)
  Receive Date: 20130510
  Receipt Date: 20130604
  Transmission Date: 20140414
  Serious: Yes (Other)
  Sender: FDA-Public Use
  Company Number: PHEH2013US009564

PATIENT
  Sex: Male

DRUGS (4)
  1. GLEEVEC [Suspect]
     Dosage: UNK UKN, UNK
  2. TERAZOSIN [Concomitant]
  3. DOXAZOCIN [Concomitant]
  4. LOVENOX [Concomitant]
     Indication: THROMBOSIS

REACTIONS (7)
  - Hepatic neoplasm [Unknown]
  - Pain in extremity [Unknown]
  - Joint swelling [Unknown]
  - Local swelling [Unknown]
  - Rash [Unknown]
  - Drug ineffective [Unknown]
  - Pruritus [Unknown]
